FAERS Safety Report 25714108 (Version 2)
Quarter: 2025Q3

REPORT INFORMATION
  Report Type: Report from Study
  Country: PE (occurrence: PE)
  Receive Date: 20250822
  Receipt Date: 20250829
  Transmission Date: 20251021
  Serious: Yes (Other)
  Sender: ROCHE
  Company Number: PE-ROCHE-10000351147

PATIENT
  Age: 45 Year
  Sex: Female
  Weight: 75 kg

DRUGS (3)
  1. PERJETA [Suspect]
     Active Substance: PERTUZUMAB
     Indication: Breast cancer
     Dosage: DOSE WAS NOT REPORTED FOR PERTUZUMAB. LAST ADMINISTRATION OF PERTUZUMAB 14-AUG-2025. DRUG RECEIVED I
     Route: 042
     Dates: start: 20250414
  2. HERCEPTIN [Suspect]
     Active Substance: TRASTUZUMAB
     Indication: Breast cancer
     Dosage: DOSE WAS NOT REPORTED FOR TRASTUZUMAB. LAST ADMINISTRATION OF TRASTUZUMAB 14-AUG-2025.  DRUG RECEIVE
     Route: 042
     Dates: start: 20250324
  3. PACLITAXEL [Suspect]
     Active Substance: PACLITAXEL
     Indication: Breast cancer
     Dosage: DOSE AND FREQUENCY WERE NOT REPORTED. DRUG RECEIVED IN SEQUENCE DATE 24-JUN-2025, TIME 08:00. DATE 1
     Route: 065
     Dates: start: 20250602

REACTIONS (1)
  - Breast neoplasm [Unknown]
